FAERS Safety Report 14066364 (Version 11)
Quarter: 2018Q4

REPORT INFORMATION
  Report Type: Report from Study
  Country: GB (occurrence: GB)
  Receive Date: 20171009
  Receipt Date: 20181219
  Transmission Date: 20190204
  Serious: Yes (Hospitalization, Other)
  Sender: FDA-Public Use
  Company Number: GB-MYLANLABS-2017M1061735

PATIENT
  Age: 73 Year
  Sex: Male

DRUGS (19)
  1. MST CONTINUS [Suspect]
     Active Substance: MORPHINE SULFATE
     Indication: BACK PAIN
     Dosage: 10 MG, BID(20 MG QD)
     Route: 048
     Dates: start: 20170710
  2. FORMOTEROL [Suspect]
     Active Substance: FORMOTEROL
     Indication: PRODUCT USED FOR UNKNOWN INDICATION
     Dosage: UNK
  3. FLUTICASONE. [Concomitant]
     Active Substance: FLUTICASONE
     Indication: ASTHMA
     Dosage: 250 ?G, BID
     Route: 065
     Dates: start: 20110318
  4. TAMSULOSIN [Suspect]
     Active Substance: TAMSULOSIN
     Indication: PRODUCT USED FOR UNKNOWN INDICATION
     Dosage: 400 ?G, QD
     Route: 065
     Dates: start: 20110805
  5. TAMSULOSIN [Suspect]
     Active Substance: TAMSULOSIN
     Dosage: 400 G, QD
     Route: 065
     Dates: start: 20110805
  6. LCZ 696 [Suspect]
     Active Substance: SACUBITRIL\VALSARTAN
     Dosage: CODE NOT BROKEN
     Route: 048
  7. BUMETANIDE. [Concomitant]
     Active Substance: BUMETANIDE
     Indication: CARDIAC FAILURE
     Dosage: 1 MG, TID (3 MG QD)
     Route: 048
     Dates: start: 20170809, end: 20170816
  8. BUMETANIDE. [Concomitant]
     Active Substance: BUMETANIDE
     Dosage: 2 MG, QD
     Route: 048
  9. FLUTICASONE. [Concomitant]
     Active Substance: FLUTICASONE
     Dosage: 500 G, QD
     Route: 065
     Dates: start: 20110318
  10. SALBUTAMOL [Concomitant]
     Active Substance: ALBUTEROL
     Dosage: UNK
     Route: 065
  11. FORMOTEROL [Concomitant]
     Active Substance: FORMOTEROL
     Indication: PRODUCT USED FOR UNKNOWN INDICATION
     Dosage: UNK
     Route: 065
  12. DIOVAN [Suspect]
     Active Substance: VALSARTAN
     Indication: CARDIAC FAILURE
     Dosage: UNK, CODE NOT BROKEN
     Route: 048
     Dates: start: 20151204
  13. MST CONTINUS [Suspect]
     Active Substance: MORPHINE SULFATE
     Dosage: 20 MILLIGRAM, QD
     Route: 048
     Dates: start: 20170710
  14. BUMETANIDE. [Concomitant]
     Active Substance: BUMETANIDE
     Dosage: 24 MG, UNK
     Route: 048
  15. LCZ 696 [Suspect]
     Active Substance: SACUBITRIL\VALSARTAN
     Indication: CARDIAC FAILURE
     Dosage: CODE NOT BROKEN
     Route: 048
     Dates: start: 20151204
  16. LCZ 696 [Suspect]
     Active Substance: SACUBITRIL\VALSARTAN
     Dosage: CODE NOT BROKEN
     Route: 048
     Dates: start: 20151204
  17. MST CONTINUS [Suspect]
     Active Substance: MORPHINE SULFATE
     Dosage: 720 MG, UNK
     Route: 065
  18. BUMETANIDE. [Concomitant]
     Active Substance: BUMETANIDE
     Dosage: 4 MG, UNK
     Route: 048
  19. SALBUTAMOL [Concomitant]
     Active Substance: ALBUTEROL
     Indication: ASTHMA
     Dosage: MCG PRN
     Route: 048
     Dates: start: 20121224

REACTIONS (5)
  - Fall [Recovered/Resolved]
  - Urinary tract infection [Recovered/Resolved]
  - Asthma [Recovered/Resolved]
  - Lower respiratory tract infection [Unknown]
  - Urinary retention [Recovered/Resolved]

NARRATIVE: CASE EVENT DATE: 20170815
